FAERS Safety Report 9354301 (Version 2)
Quarter: 2014Q1

REPORT INFORMATION
  Report Type: Spontaneous
  Country: IT (occurrence: None)
  Receive Date: 20130613
  Receipt Date: 20140131
  Transmission Date: 20141002
  Serious: Yes (Other)
  Sender: FDA-Public Use
  Company Number: 2013AP005861

PATIENT
  Age: 19 Year
  Sex: Female

DRUGS (4)
  1. PAROXETINE [Suspect]
     Dosage: TOTAL
     Route: 048
     Dates: start: 20130413, end: 20130413
  2. TRILAFON [Suspect]
     Dosage: TOTAL
     Route: 048
     Dates: start: 20130423, end: 20130423
  3. XANAX (ALPRAZOLAM) [Suspect]
     Route: 048
     Dates: start: 20130423, end: 20130423
  4. SURMONTIL [Suspect]
     Dosage: TOTAL
     Route: 048
     Dates: start: 20130423, end: 20130423

REACTIONS (3)
  - Confusional state [None]
  - Drug abuse [None]
  - Toxicity to various agents [None]
